FAERS Safety Report 5262212-7 (Version None)
Quarter: 2007Q1

REPORT INFORMATION
  Report Type: 
  Country: None (occurrence: None)
  Receive Date: 20070312
  Receipt Date: 20070227
  Transmission Date: 20070707
  Serious: Yes (Hospitalization)
  Sender: FDA-Public Use
  Company Number: PHHO2006JP05130

PATIENT
  Age: 63 Year
  Sex: Male

DRUGS (7)
  1. EXJADE [Suspect]
     Indication: MYELODYSPLASTIC SYNDROME
     Dosage: 750 MG, QD
     Route: 048
     Dates: start: 20051101, end: 20060614
  2. LEVOFLOXACIN [Concomitant]
     Indication: PNEUMONIA
     Dosage: UNK, NO TREATMENT
     Dates: start: 20060320, end: 20060412
  3. LEVOFLOXACIN [Concomitant]
     Dosage: 400 MG, QD
     Dates: start: 20060413
  4. LEVOFLOXACIN [Concomitant]
     Dosage: 400 MG, UNK
     Route: 048
     Dates: start: 20050728, end: 20060319
  5. NAPA [Concomitant]
     Dosage: 2 G, UNK
     Route: 048
     Dates: start: 20060223
  6. TEGRETOL [Concomitant]
     Dosage: 600 MG, UNK
     Route: 048
  7. XYLOCAINE [Concomitant]
     Dosage: 12 ML, UNK
     Route: 061

REACTIONS (11)
  - BACTERIAL INFECTION [None]
  - CANDIDA PNEUMONIA [None]
  - FUNGAL INFECTION [None]
  - LARYNGEAL OPERATION [None]
  - LUNG INFILTRATION [None]
  - NASOPHARYNGEAL DISORDER [None]
  - ODYNOPHAGIA [None]
  - PHARYNGEAL ULCERATION [None]
  - PHARYNGOLARYNGEAL PAIN [None]
  - PRODUCTIVE COUGH [None]
  - PYREXIA [None]
